FAERS Safety Report 8926937 (Version 1)
Quarter: 2012Q4

REPORT INFORMATION
  Report Type: 
  Country: US (occurrence: US)
  Receive Date: 20121127
  Receipt Date: 20121127
  Transmission Date: 20130627
  Serious: Yes (Hospitalization)
  Sender: FDA-Public Use
  Company Number: US-ASTRAZENECA-2012SE87839

PATIENT
  Age: 60 Year
  Sex: Male

DRUGS (1)
  1. SYMBICORT PMDI [Suspect]
     Dosage: UNKNOWN
     Route: 055

REACTIONS (3)
  - Fall [Unknown]
  - Blood pressure decreased [Unknown]
  - Haematoma [Unknown]
